FAERS Safety Report 20821831 (Version 1)
Quarter: 2022Q2

REPORT INFORMATION
  Report Type: Spontaneous
  Country: FR (occurrence: FR)
  Receive Date: 20220512
  Receipt Date: 20220512
  Transmission Date: 20220720
  Serious: Yes (Death, Hospitalization, Other)
  Sender: FDA-Public Use
  Company Number: None

PATIENT
  Age: 69 Year
  Sex: Male
  Weight: 65 kg

DRUGS (1)
  1. DILTIAZEM [Suspect]
     Active Substance: DILTIAZEM
     Indication: Product used for unknown indication
     Dosage: 18 GRAM (90 TABLETS OF 200 MILLIGRAM)
     Route: 048
     Dates: start: 20220407, end: 20220407

REACTIONS (3)
  - Cardiogenic shock [Fatal]
  - Toxicity to various agents [Fatal]
  - Suicide attempt [Unknown]

NARRATIVE: CASE EVENT DATE: 20220407
